FAERS Safety Report 11414531 (Version 1)
Quarter: 2015Q3

REPORT INFORMATION
  Report Type: Spontaneous
  Country: US (occurrence: None)
  Receive Date: 20150824
  Receipt Date: 20150824
  Transmission Date: 20151125
  Serious: Yes (Death, Life-Threatening, Hospitalization)
  Sender: FDA-Public Use
  Company Number: None

PATIENT
  Age: 52 Year
  Sex: Male
  Weight: 83.4 kg

DRUGS (12)
  1. FENTANYL TRANSDERMAL SYSTEM [Concomitant]
     Active Substance: FENTANYL
  2. LORAZAPAM [Concomitant]
     Active Substance: LORAZEPAM
  3. PREGABALIN. [Concomitant]
     Active Substance: PREGABALIN
  4. ERGOCALCIFEROL. [Concomitant]
     Active Substance: ERGOCALCIFEROL
  5. OXYCODONE [Concomitant]
     Active Substance: OXYCODONE
  6. ALBUTEROL. [Concomitant]
     Active Substance: ALBUTEROL
  7. CYANACOBALAMIN [Concomitant]
  8. CENTRUM SILVER TABLET [Concomitant]
  9. NIVOLUMAB [Suspect]
     Active Substance: NIVOLUMAB
     Indication: LUNG CARCINOMA CELL TYPE UNSPECIFIED STAGE IV
     Dosage: 236 MG, Q2WKS
     Route: 042
     Dates: start: 20150612, end: 20150626
  10. LORATADINE. [Concomitant]
     Active Substance: LORATADINE
  11. PROCHLORPERAZINE. [Concomitant]
     Active Substance: PROCHLORPERAZINE
  12. FUROSEMID [Concomitant]
     Active Substance: FUROSEMIDE

REACTIONS (6)
  - Troponin increased [None]
  - Infection [None]
  - Pericardial effusion [None]
  - Cardiogenic shock [None]
  - Ejection fraction decreased [None]
  - Blood pressure decreased [None]

NARRATIVE: CASE EVENT DATE: 20150703
